FAERS Safety Report 5015376-4 (Version None)
Quarter: 2006Q2

REPORT INFORMATION
  Report Type: 
  Country: None (occurrence: None)
  Receive Date: 20060601
  Receipt Date: 20060523
  Transmission Date: 20061013
  Serious: Yes (Life-Threatening)
  Sender: FDA-Public Use
  Company Number: FR-JNJFOC-20060505359

PATIENT
  Age: 65 Year
  Sex: Male

DRUGS (3)
  1. REMICADE [Suspect]
     Indication: RHEUMATOID ARTHRITIS
     Route: 042
  2. METHOTREXATE [Suspect]
     Indication: RHEUMATOID ARTHRITIS
     Route: 048
  3. CORTANCYL [Suspect]
     Indication: RHEUMATOID ARTHRITIS
     Dosage: LONG TERM TREATMENT
     Route: 048

REACTIONS (1)
  - RENAL CELL CARCINOMA STAGE UNSPECIFIED [None]
